FAERS Safety Report 4958175-1 (Version None)
Quarter: 2006Q1

REPORT INFORMATION
  Report Type: 
  Country: None (occurrence: None)
  Receive Date: 20060330
  Receipt Date: 20060310
  Transmission Date: 20060701
  Serious: Yes (Hospitalization)
  Sender: FDA-Public Use
  Company Number: BE-BRISTOL-MYERS SQUIBB COMPANY-13320932

PATIENT
  Age: 56 Year
  Sex: Male

DRUGS (2)
  1. ERBITUX [Suspect]
     Indication: GLIOMA
     Dosage: 400 MG/M2, LAST DOSE 250.
     Route: 042
     Dates: start: 20060223, end: 20060302
  2. ASAFLOW [Concomitant]
     Indication: CARDIOVASCULAR DISORDER
     Dates: start: 20000101, end: 20060310

REACTIONS (2)
  - HEADACHE [None]
  - TUMOUR HAEMORRHAGE [None]
